FAERS Safety Report 13091873 (Version 1)
Quarter: 2017Q1

REPORT INFORMATION
  Report Type: Spontaneous
  Country: GB (occurrence: GB)
  Receive Date: 20170106
  Receipt Date: 20170106
  Transmission Date: 20170428
  Serious: Yes (Other)
  Sender: FDA-Public Use
  Company Number: GB-ASTRAZENECA-2016SF38148

PATIENT
  Age: 70 Year
  Sex: Male
  Weight: 94 kg

DRUGS (6)
  1. EKLIRA GENUAIR [Suspect]
     Active Substance: ACLIDINIUM BROMIDE
     Route: 055
     Dates: start: 20160815
  2. FOSTAIR [Concomitant]
     Active Substance: BECLOMETHASONE\FORMOTEROL
     Route: 055
     Dates: start: 20161013
  3. AMOXICILLIN. [Concomitant]
     Active Substance: AMOXICILLIN
     Dates: start: 20161019, end: 20161026
  4. SALBUTAMOL [Concomitant]
     Active Substance: ALBUTEROL
     Dosage: 2.0DF UNKNOWN
     Route: 055
     Dates: start: 20161102, end: 20161103
  5. PREDNISOLONE. [Concomitant]
     Active Substance: PREDNISOLONE
     Dates: start: 20161019, end: 20161116
  6. DUAKLIR GENUAIR [Concomitant]
     Active Substance: ACLIDINIUM BROMIDE\FORMOTEROL FUMARATE
     Route: 055
     Dates: start: 20161010, end: 20161013

REACTIONS (3)
  - Muscular weakness [Unknown]
  - Dry mouth [Unknown]
  - Vision blurred [Unknown]

NARRATIVE: CASE EVENT DATE: 20161219
